FAERS Safety Report 9072448 (Version 3)
Quarter: 2013Q1

REPORT INFORMATION
  Report Type: Spontaneous
  Country: US (occurrence: US)
  Receive Date: 20130207
  Receipt Date: 20130326
  Transmission Date: 20140127
  Serious: Yes (Other)
  Sender: FDA-Public Use
  Company Number: US-PFIZER INC-2013042371

PATIENT
  Age: 11 Month
  Sex: Male
  Weight: 9.3 kg

DRUGS (1)
  1. XYNTHA [Suspect]
     Indication: HAEMOPHILIA
     Dosage: 478 IU, UNK
     Route: 042
     Dates: start: 20121106, end: 20121107

REACTIONS (1)
  - Factor VIII inhibition [Not Recovered/Not Resolved]
